FAERS Safety Report 11370282 (Version 1)
Quarter: 2015Q3

REPORT INFORMATION
  Report Type: Spontaneous
  Country: JP (occurrence: JP)
  Receive Date: 20150812
  Receipt Date: 20150812
  Transmission Date: 20151125
  Serious: Yes (Hospitalization)
  Sender: FDA-Public Use
  Company Number: JP-SA-2015SA118674

PATIENT
  Age: 60 Year
  Sex: Female

DRUGS (3)
  1. TENELIGLIPTIN [Suspect]
     Active Substance: TENELIGLIPTIN
     Route: 048
  2. ATORVASTATIN [Suspect]
     Active Substance: ATORVASTATIN
     Route: 048
  3. GLIMEPIRIDE. [Suspect]
     Active Substance: GLIMEPIRIDE
     Route: 048

REACTIONS (7)
  - Tubulointerstitial nephritis [Recovered/Resolved]
  - Anuria [Recovered/Resolved]
  - Pyrexia [Recovered/Resolved]
  - Urine output decreased [Recovered/Resolved]
  - Blood creatinine abnormal [Recovered/Resolved]
  - Biopsy kidney abnormal [Recovered/Resolved]
  - Renal impairment [Recovered/Resolved]
